FAERS Safety Report 8544184-2 (Version None)
Quarter: 2012Q3

REPORT INFORMATION
  Report Type: 
  Country: None (occurrence: None)
  Receive Date: 20120718
  Receipt Date: 20120718
  Transmission Date: 20120928
  Serious: Yes (Other)
  Sender: FDA-Public Use
  Company Number: None

PATIENT
  Sex: Female

DRUGS (1)
  1. CYMBALTA [Suspect]
     Dosage: 60 MG DAILY PO
     Route: 048
     Dates: start: 20101013, end: 20120709

REACTIONS (2)
  - PRODUCT PACKAGING QUANTITY ISSUE [None]
  - PRODUCT TAMPERING [None]
